FAERS Safety Report 22613221 (Version 1)
Quarter: 2023Q2

REPORT INFORMATION
  Report Type: Spontaneous
  Country: GB (occurrence: GB)
  Receive Date: 20230618
  Receipt Date: 20230618
  Transmission Date: 20230721
  Serious: Yes (Disabling)
  Sender: FDA-Public Use
  Company Number: None

PATIENT
  Age: 69 Year
  Sex: Female
  Weight: 56 kg

DRUGS (12)
  1. ISOSORBIDE MONONITRATE [Suspect]
     Active Substance: ISOSORBIDE MONONITRATE
     Indication: Product used for unknown indication
     Dosage: UNIT DOSE : 10 MG,THERAPY END DATE: NASK
     Route: 065
     Dates: start: 20220617
  2. AMLODIPINE [Concomitant]
     Active Substance: AMLODIPINE BESYLATE
     Indication: Hypertension
     Dosage: 1 DOSAGE FORMS DAILY; UNIT DOSE : 1 DF, OD
     Dates: start: 20220527
  3. AMOXICILLIN [Concomitant]
     Active Substance: AMOXICILLIN
     Indication: Infection
     Dosage: 3 DOSAGE FORMS DAILY; UNIT DOSE: 1 DF, 3 TIMES A DAY, DURATION : 7 DAYS
     Dates: start: 20220421, end: 20220428
  4. ATORVASTATIN [Concomitant]
     Active Substance: ATORVASTATIN
     Indication: Blood cholesterol increased
     Dosage: 1 DOSAGE FORMS DAILY; UNIT DOSE : 1 DF, OD
     Dates: start: 20220527
  5. CLARITHROMYCIN [Concomitant]
     Active Substance: CLARITHROMYCIN
     Indication: Infection
     Dosage: 2 DOSAGE FORMS DAILY; UNIT DOSE: 1 DF, BD, DURATION : 7 DAYS
     Dates: start: 20220504, end: 20220511
  6. CLOPIDOGREL [Concomitant]
     Active Substance: CLOPIDOGREL BISULFATE
     Indication: Product used for unknown indication
     Dosage: 1 DOSAGE FORMS DAILY; UNIT DOSE : 1 DF, OD
     Dates: start: 20220527
  7. ESTRADIOL [Concomitant]
     Active Substance: ESTRADIOL
     Indication: Product used for unknown indication
     Dosage: 2 DOSAGE FORMS DAILY; UNIT DOSE: 1 DF, BD
     Dates: start: 20220302
  8. NITROGLYCERIN [Concomitant]
     Active Substance: NITROGLYCERIN
     Indication: Product used for unknown indication
     Dosage: UNIT DOSE: 1 DF, DURATION : 60 DAYS
     Route: 060
     Dates: start: 20220328, end: 20220527
  9. PREDNISOLONE [Concomitant]
     Active Substance: PREDNISOLONE
     Indication: Asthma
     Dosage: UNIT DOSE : 6 DF, DURATION  :5 DAYS
     Dates: start: 20220420, end: 20220425
  10. PROGESTERONE [Concomitant]
     Active Substance: PROGESTERONE
     Indication: Product used for unknown indication
     Dosage: 1 DOSAGE FORMS DAILY; AT NIGHT, UNIT DOSE: 1 DF
     Dates: start: 20220302
  11. SYMBICORT [Concomitant]
     Active Substance: BUDESONIDE\FORMOTEROL FUMARATE DIHYDRATE
     Indication: Product used for unknown indication
     Dosage: INHALE 2-3 PUFFS TWICE DAILY (LOW DOSE ICS/LABA...
     Route: 055
     Dates: start: 20220302
  12. VAGIFEM [Concomitant]
     Active Substance: ESTRADIOL
     Indication: Product used for unknown indication
     Dosage: UNIT DOSE : 2 DF, FREQUENCY : 2 IN 1 WEEK
     Dates: start: 20220302

REACTIONS (4)
  - Pain in extremity [Recovered/Resolved]
  - Dizziness [Recovered/Resolved]
  - Monoplegia [Recovered/Resolved]
  - Burning sensation [Unknown]

NARRATIVE: CASE EVENT DATE: 20220617
